FAERS Safety Report 4675015-9 (Version None)
Quarter: 2005Q2

REPORT INFORMATION
  Report Type: 
  Country: None (occurrence: None)
  Receive Date: 20050525
  Receipt Date: 20050513
  Transmission Date: 20051028
  Serious: No
  Sender: FDA-Public Use
  Company Number: 214480

PATIENT
  Age: 34 Year
  Sex: Female
  Weight: 61.2 kg

DRUGS (1)
  1. RAPTIVA [Suspect]
     Indication: PSORIASIS
     Dosage: 62 MG, 1/WEEK, SUBCUTANEOUS
     Route: 058
     Dates: start: 20041110

REACTIONS (2)
  - BONE PAIN [None]
  - WHITE BLOOD CELL COUNT INCREASED [None]
